FAERS Safety Report 18536851 (Version 1)
Quarter: 2020Q4

REPORT INFORMATION
  Report Type: Spontaneous
  Country: US (occurrence: US)
  Receive Date: 20201124
  Receipt Date: 20201124
  Transmission Date: 20210114
  Serious: Yes (Other)
  Sender: FDA-Public Use
  Company Number: US-TEVA-2020-US-1851829

PATIENT
  Age: 74 Year
  Sex: Male

DRUGS (1)
  1. CLONIDINE. [Suspect]
     Active Substance: CLONIDINE
     Indication: HYPERTENSION
     Dosage: .6 MILLIGRAM DAILY; BEEN ON THIS MEDICATION FOR A YEAR AND A HALF
     Route: 065

REACTIONS (4)
  - Drug ineffective [Unknown]
  - Cataract operation [Unknown]
  - Dry mouth [Not Recovered/Not Resolved]
  - Hypertension [Unknown]
